FAERS Safety Report 4353130-7 (Version None)
Quarter: 2004Q2

REPORT INFORMATION
  Report Type: 
  Country: None (occurrence: None)
  Receive Date: 20040430
  Receipt Date: 20040211
  Transmission Date: 20050107
  Serious: No
  Sender: FDA-Public Use
  Company Number: 204695

PATIENT
  Age: 53 Year
  Sex: Male
  Weight: 63.5 kg

DRUGS (5)
  1. XOLAIR [Suspect]
     Indication: ASTHMA
     Dosage: 300 MG Q2W SUBCUTANEOUS
     Route: 058
     Dates: start: 20031001
  2. SINGULAIR [Concomitant]
  3. ADVAIR DISKUS [Concomitant]
  4. PULMICORT [Concomitant]
  5. FORADIL [Concomitant]

REACTIONS (1)
  - DRUG INEFFECTIVE [None]
